FAERS Safety Report 8898666 (Version 1)
Quarter: 2012Q4

REPORT INFORMATION
  Report Type: 
  Country: JP (occurrence: JP)
  Receive Date: 20121109
  Receipt Date: 20121109
  Transmission Date: 20130627
  Serious: Yes (Other)
  Sender: FDA-Public Use
  Company Number: JP-JNJFOC-20121101837

PATIENT

DRUGS (7)
  1. INFLIXIMAB, RECOMBINANT [Suspect]
     Indication: RHEUMATOID ARTHRITIS
     Route: 042
  2. METHOTREXATE [Concomitant]
     Route: 065
  3. TACROLIMUS [Concomitant]
     Route: 065
  4. LEFLUNOMIDE [Concomitant]
     Route: 065
  5. MIZORIBINE [Concomitant]
     Route: 065
  6. CICLOSPORIN [Concomitant]
     Route: 065
  7. CORTICOSTEROID [Concomitant]
     Route: 048

REACTIONS (10)
  - Infection [Unknown]
  - Lung disorder [Unknown]
  - Interstitial lung disease [Unknown]
  - Neoplasm malignant [Unknown]
  - Cardiovascular disorder [Unknown]
  - Adverse event [Unknown]
  - Infusion related reaction [Unknown]
  - Hypersensitivity [Unknown]
  - Drug ineffective [Unknown]
  - Exposure during pregnancy [Unknown]
